FAERS Safety Report 9275161 (Version 2)
Quarter: 2013Q2

REPORT INFORMATION
  Report Type: Spontaneous
  Country: US (occurrence: US)
  Receive Date: 20130507
  Receipt Date: 20130625
  Transmission Date: 20140414
  Serious: No
  Sender: FDA-Public Use
  Company Number: US-009507513-1305USA000757

PATIENT
  Age: 47 Year
  Sex: Male
  Weight: 124.72 kg

DRUGS (8)
  1. PEGINTRON [Suspect]
     Indication: HEPATITIS C
     Dosage: 150 MICROGRAM, QW, REDIPEN
     Route: 058
     Dates: start: 20130402
  2. REBETOL [Suspect]
     Route: 048
  3. VICTRELIS [Suspect]
     Route: 048
  4. METFORMIN [Concomitant]
     Route: 048
  5. LANTUS [Concomitant]
  6. HUMALOG [Concomitant]
     Dosage: 75/25KWP
  7. LISINOPRIL [Concomitant]
     Route: 048
  8. OMEPRAZOLE [Concomitant]
     Route: 048

REACTIONS (4)
  - Chromaturia [Unknown]
  - Nausea [Unknown]
  - Diarrhoea [Unknown]
  - Nausea [Unknown]
